FAERS Safety Report 7297825-4 (Version None)
Quarter: 2011Q1

REPORT INFORMATION
  Report Type: 
  Country: None (occurrence: None)
  Receive Date: 20110217
  Receipt Date: 20100507
  Transmission Date: 20110831
  Serious: Yes (Hospitalization)
  Sender: FDA-Public Use
  Company Number: MA-RANBAXY-2010RR-33073

PATIENT
  Age: 76 Year
  Sex: Female

DRUGS (8)
  1. CALCIUM [Concomitant]
  2. PARACETAMOL [Suspect]
     Indication: ARTHRALGIA
  3. ACETYLSALICYLIC ACID [Concomitant]
     Dosage: 100 MG, UNK
  4. CELECOXIB [Suspect]
     Indication: ARTHRALGIA
  5. ERGOCALCIFEROL [Concomitant]
  6. INDAPAMID [Concomitant]
     Indication: HYPERTENSION
  7. OMEPRAZOLE [Concomitant]
     Indication: GASTRITIS
     Dosage: 20 MG, UNK
  8. THIOCOLCHICOSIDE [Suspect]
     Indication: ARTHRALGIA

REACTIONS (1)
  - TOXIC EPIDERMAL NECROLYSIS [None]
